FAERS Safety Report 23775825 (Version 1)
Quarter: 2024Q2

REPORT INFORMATION
  Report Type: Spontaneous
  Country: US (occurrence: US)
  Receive Date: 20240424
  Receipt Date: 20240424
  Transmission Date: 20240716
  Serious: No
  Sender: FDA-Public Use
  Company Number: US-HALEON-2168411

PATIENT

DRUGS (1)
  1. SODIUM FLUORIDE [Suspect]
     Active Substance: SODIUM FLUORIDE\SODIUM MONOFLUOROPHOSPHATE

REACTIONS (1)
  - Paraesthesia oral [Unknown]
